FAERS Safety Report 8609244-6 (Version None)
Quarter: 2012Q3

REPORT INFORMATION
  Report Type: 
  Country: None (occurrence: None)
  Receive Date: 20120821
  Receipt Date: 20120814
  Transmission Date: 20120928
  Serious: Yes (Other)
  Sender: FDA-Public Use
  Company Number: US-JNJFOC-20120808775

PATIENT

DRUGS (6)
  1. CARBOPLATIN [Suspect]
     Indication: RETINOBLASTOMA
     Dosage: 6 COURSES IN HIGH RISK
     Route: 065
  2. DOXORUBICIN HCL [Suspect]
     Indication: RETINOBLASTOMA
     Dosage: 4 COURSES IN INTERMEDIATE RISK AND 6 COURSES IN HIGH RISK
     Route: 042
  3. VINCRISTINE [Suspect]
     Indication: RETINOBLASTOMA
     Dosage: 4 COURSES IN INTERMEDIATE RISK AND 6 COURSES IN HIGH RISK
     Route: 065
  4. ETOPOSIDE [Suspect]
     Indication: RETINOBLASTOMA
     Route: 065
  5. CYCLOPHOSPHAMIDE [Suspect]
     Indication: RETINOBLASTOMA
     Route: 065
  6. NEUPOGEN [Concomitant]
     Indication: PRODUCT USED FOR UNKNOWN INDICATION
     Route: 065

REACTIONS (4)
  - GASTROINTESTINAL TOXICITY [None]
  - OFF LABEL USE [None]
  - NEUTROPENIA [None]
  - INFECTION [None]
